FAERS Safety Report 4356990-9 (Version None)
Quarter: 2004Q2

REPORT INFORMATION
  Report Type: 
  Country: None (occurrence: None)
  Receive Date: 20040507
  Receipt Date: 20040416
  Transmission Date: 20050107
  Serious: Yes (Death, Other)
  Sender: FDA-Public Use
  Company Number: US_0404102343

PATIENT
  Age: 56 Year
  Sex: Female
  Weight: 91 kg

DRUGS (8)
  1. XIGRIS [Suspect]
     Indication: SEPSIS
     Dosage: 24 UG/KG/HR
     Dates: start: 20040318, end: 20040321
  2. LEVOFLOXACIN [Concomitant]
  3. AZTREONAM [Concomitant]
  4. PROPOFOL [Concomitant]
  5. NOREPINEPHRINE BITARTRATE [Concomitant]
  6. PHNEYLEPHRINE HYDROCHLORIDE [Concomitant]
  7. INSULIN [Concomitant]
  8. SODIUM BICARBONATE [Concomitant]

REACTIONS (2)
  - HAEMORRHAGE INTRACRANIAL [None]
  - PLATELET COUNT DECREASED [None]
